FAERS Safety Report 11447054 (Version 1)
Quarter: 2015Q3

REPORT INFORMATION
  Report Type: Spontaneous
  Country: US (occurrence: US)
  Receive Date: 20150831
  Receipt Date: 20150831
  Transmission Date: 20151125
  Serious: No
  Sender: FDA-Public Use
  Company Number: US-ELI_LILLY_AND_COMPANY-US200902002161

PATIENT
  Sex: Female

DRUGS (7)
  1. CYMBALTA [Suspect]
     Active Substance: DULOXETINE HYDROCHLORIDE
     Indication: MYALGIA
     Dosage: 30 MG, UNK
     Dates: start: 200802
  2. WELLBUTRIN [Concomitant]
     Active Substance: BUPROPION HYDROCHLORIDE
     Indication: SMOKING CESSATION THERAPY
  3. SYNTHROID [Concomitant]
     Active Substance: LEVOTHYROXINE SODIUM
  4. CYTOMEL [Concomitant]
     Active Substance: LIOTHYRONINE SODIUM
  5. ANTIHYPERTENSIVES [Concomitant]
     Active Substance: UNSPECIFIED INGREDIENT
  6. CYMBALTA [Suspect]
     Active Substance: DULOXETINE HYDROCHLORIDE
     Dosage: 1 D/F, UNK
  7. METFORMIN [Concomitant]
     Active Substance: METFORMIN HYDROCHLORIDE

REACTIONS (18)
  - Drug withdrawal syndrome [Recovering/Resolving]
  - Crying [Recovering/Resolving]
  - Suicidal ideation [Recovered/Resolved]
  - Pain [Recovered/Resolved]
  - Hyperacusis [Recovered/Resolved]
  - Palpitations [Recovered/Resolved]
  - Dizziness [Recovering/Resolving]
  - Photophobia [Recovered/Resolved]
  - Nausea [Recovered/Resolved]
  - Activities of daily living impaired [Recovered/Resolved]
  - Hypertension [Recovered/Resolved]
  - Paraesthesia [Recovering/Resolving]
  - Panic attack [Recovered/Resolved]
  - Hallucination [Not Recovered/Not Resolved]
  - Decreased appetite [Recovered/Resolved]
  - Headache [Recovering/Resolving]
  - Memory impairment [Recovered/Resolved]
  - Vertigo [Unknown]

NARRATIVE: CASE EVENT DATE: 200802
